FAERS Safety Report 8120989-7 (Version None)
Quarter: 2012Q1

REPORT INFORMATION
  Report Type: 
  Country: None (occurrence: None)
  Receive Date: 20120203
  Receipt Date: 20120118
  Transmission Date: 20120608
  Serious: Yes (Other)
  Sender: FDA-Public Use
  Company Number: 2012010187

PATIENT
  Age: 16 Year
  Sex: Female

DRUGS (3)
  1. ZOLPIDEM [Suspect]
  2. VALPROATE SODIUM [Concomitant]
  3. PAROXETINE HCL [Concomitant]

REACTIONS (2)
  - AGGRESSION [None]
  - INTENTIONAL DRUG MISUSE [None]
